FAERS Safety Report 4849109-9 (Version None)
Quarter: 2005Q4

REPORT INFORMATION
  Report Type: 
  Country: None (occurrence: None)
  Receive Date: 20051209
  Receipt Date: 20041208
  Transmission Date: 20060501
  Serious: Yes (Hospitalization)
  Sender: FDA-Public Use
  Company Number: PL-GLAXOSMITHKLINE-B0362398A

PATIENT
  Age: 41 Year
  Weight: 76 kg

DRUGS (1)
  1. ZINACEF [Suspect]
     Route: 065
     Dates: start: 20041112

REACTIONS (10)
  - ACCIDENTAL EXPOSURE [None]
  - CHILLS [None]
  - DYSPHONIA [None]
  - HYPERSENSITIVITY [None]
  - LARYNGOTRACHEITIS [None]
  - PALLOR [None]
  - PARAESTHESIA [None]
  - PRURITUS [None]
  - SENSATION OF FOREIGN BODY [None]
  - THROAT IRRITATION [None]
